FAERS Safety Report 4932972-0 (Version None)
Quarter: 2006Q1

REPORT INFORMATION
  Report Type: 
  Country: None (occurrence: None)
  Receive Date: 20060301
  Receipt Date: 20060301
  Transmission Date: 20060701
  Serious: Yes (Hospitalization)
  Sender: FDA-Public Use
  Company Number: None

PATIENT
  Age: 66 Year
  Sex: Male
  Weight: 90 kg

DRUGS (11)
  1. ETANERCEPT 25MG AMGEN [Suspect]
     Indication: MYOSITIS
     Dosage: 25MG EACH - TOTAL 50MG- 2 INJECTIONS/WKLY SQ
     Route: 058
     Dates: start: 20050803, end: 20060222
  2. PLACEBO 25MG AMGEN [Suspect]
  3. DIGITEX [Concomitant]
  4. DIOVAN [Concomitant]
  5. ZETIA [Concomitant]
  6. LOPID [Concomitant]
  7. ASPIRIN [Concomitant]
  8. NEURONTIN [Concomitant]
  9. FOLIC ACID [Concomitant]
  10. NIACIN [Concomitant]
  11. ALLOPURINOL [Concomitant]

REACTIONS (2)
  - CHEST DISCOMFORT [None]
  - DYSPNOEA [None]
